FAERS Safety Report 14337412 (Version 2)
Quarter: 2018Q1

REPORT INFORMATION
  Report Type: Spontaneous
  Country: CA (occurrence: CA)
  Receive Date: 20171229
  Receipt Date: 20180208
  Transmission Date: 20180509
  Serious: Yes (Other)
  Sender: FDA-Public Use
  Company Number: CA-SA-2017SA267064

PATIENT
  Age: 26 Year
  Sex: Female

DRUGS (14)
  1. SUNITINIB MALATE. [Suspect]
     Active Substance: SUNITINIB MALATE
     Indication: PARAGANGLION NEOPLASM MALIGNANT
     Route: 065
  2. MESNA. [Suspect]
     Active Substance: MESNA
     Indication: PHAEOCHROMOCYTOMA
     Route: 065
  3. TOPOTECAN HYDROCHLORIDE. [Suspect]
     Active Substance: TOPOTECAN HYDROCHLORIDE
     Indication: PHAEOCHROMOCYTOMA
     Route: 065
  4. MESNA. [Suspect]
     Active Substance: MESNA
     Indication: PARAGANGLION NEOPLASM MALIGNANT
     Route: 065
  5. AFINITOR [Suspect]
     Active Substance: EVEROLIMUS
     Indication: PARAGANGLION NEOPLASM MALIGNANT
     Route: 065
  6. CYCLOPHOSPHAMIDE. [Suspect]
     Active Substance: CYCLOPHOSPHAMIDE
     Indication: PHAEOCHROMOCYTOMA
     Route: 065
  7. VANDETANIB. [Suspect]
     Active Substance: VANDETANIB
     Indication: PHAEOCHROMOCYTOMA
     Route: 048
  8. AFINITOR [Suspect]
     Active Substance: EVEROLIMUS
     Indication: PHAEOCHROMOCYTOMA
     Route: 065
  9. TEMOZOLOMIDE. [Suspect]
     Active Substance: TEMOZOLOMIDE
     Indication: PHAEOCHROMOCYTOMA
     Route: 065
  10. SUNITINIB MALATE. [Suspect]
     Active Substance: SUNITINIB MALATE
     Indication: PHAEOCHROMOCYTOMA
     Route: 065
  11. CYCLOPHOSPHAMIDE. [Suspect]
     Active Substance: CYCLOPHOSPHAMIDE
     Indication: PARAGANGLION NEOPLASM MALIGNANT
     Route: 065
  12. VANDETANIB. [Suspect]
     Active Substance: VANDETANIB
     Indication: PARAGANGLION NEOPLASM MALIGNANT
     Route: 048
  13. TOPOTECAN HYDROCHLORIDE. [Suspect]
     Active Substance: TOPOTECAN HYDROCHLORIDE
     Indication: PARAGANGLION NEOPLASM MALIGNANT
     Route: 065
  14. TEMOZOLOMIDE. [Suspect]
     Active Substance: TEMOZOLOMIDE
     Indication: PARAGANGLION NEOPLASM MALIGNANT
     Route: 065

REACTIONS (6)
  - Metastases to bone [Unknown]
  - Pancytopenia [Unknown]
  - Metastases to central nervous system [Unknown]
  - Insomnia [Unknown]
  - Headache [Recovering/Resolving]
  - Metastases to liver [Unknown]
